FAERS Safety Report 8362950-3 (Version None)
Quarter: 2012Q2

REPORT INFORMATION
  Report Type: 
  Country: None (occurrence: None)
  Receive Date: 20120516
  Receipt Date: 20110909
  Transmission Date: 20120825
  Serious: No
  Sender: FDA-Public Use
  Company Number: US-ALEXION-A201101378

PATIENT
  Sex: Female

DRUGS (1)
  1. SOLIRIS [Suspect]
     Indication: PAROXYSMAL NOCTURNAL HAEMOGLOBINURIA
     Dosage: 900 MG Q2W
     Route: 042
     Dates: start: 20070522

REACTIONS (5)
  - PULMONARY CONGESTION [None]
  - PRODUCTIVE COUGH [None]
  - SINUS HEADACHE [None]
  - NASOPHARYNGITIS [None]
  - NEUTROPHIL COUNT ABNORMAL [None]
